FAERS Safety Report 8147390 (Version 3)
Quarter: 2013Q1

REPORT INFORMATION
  Report Type: Spontaneous
  Country: US (occurrence: US)
  Receive Date: 20110922
  Receipt Date: 20130110
  Transmission Date: 20140127
  Serious: No
  Sender: FDA-Public Use
  Company Number: US-ASTRAZENECA-2011SE42107

PATIENT
  Age: 59 Year
  Sex: Female

DRUGS (2)
  1. SEROQUEL XR [Suspect]
     Indication: MENTAL DISORDER
     Route: 048
  2. SEROQUEL XR [Suspect]
     Indication: MENTAL DISORDER
     Route: 048

REACTIONS (11)
  - Abdominal discomfort [Unknown]
  - Depression [Unknown]
  - Hyperhidrosis [Unknown]
  - Malaise [Unknown]
  - Intervertebral disc degeneration [Unknown]
  - Insomnia [Unknown]
  - Visual impairment [Unknown]
  - Restlessness [Unknown]
  - Off label use [Unknown]
  - Malaise [Unknown]
  - Drug dose omission [Unknown]
